FAERS Safety Report 18940618 (Version 1)
Quarter: 2021Q1

REPORT INFORMATION
  Report Type: Spontaneous
  Country: US (occurrence: US)
  Receive Date: 20210225
  Receipt Date: 20210225
  Transmission Date: 20210420
  Serious: Yes (Hospitalization)
  Sender: FDA-Public Use
  Company Number: US-JNJFOC-20210236447

PATIENT
  Age: 48 Year
  Sex: Male

DRUGS (2)
  1. INVEGA [Suspect]
     Active Substance: PALIPERIDONE
     Indication: SCHIZOAFFECTIVE DISORDER
     Dosage: TITRATED TO 6MG FROM 3 MG ON DAY THREE
     Route: 048
     Dates: start: 20200603, end: 20200605
  2. INVEGA [Suspect]
     Active Substance: PALIPERIDONE
     Route: 048
     Dates: start: 20200601, end: 20200603

REACTIONS (2)
  - Acute kidney injury [Recovered/Resolved]
  - Hypertension [Recovered/Resolved]

NARRATIVE: CASE EVENT DATE: 20200605
